FAERS Safety Report 11824146 (Version 3)
Quarter: 2015Q4

REPORT INFORMATION
  Report Type: Spontaneous
  Country: US (occurrence: US)
  Receive Date: 20151210
  Receipt Date: 20151214
  Transmission Date: 20160305
  Serious: Yes (Other)
  Sender: FDA-Public Use
  Company Number: US-TEVA-616005USA

PATIENT
  Age: 50 Year
  Sex: Female
  Weight: 81.72 kg

DRUGS (1)
  1. DULOXETINE. [Suspect]
     Active Substance: DULOXETINE
     Indication: DEPRESSION
     Route: 065

REACTIONS (9)
  - Confusional state [Unknown]
  - Visual acuity reduced [Unknown]
  - Vision blurred [Unknown]
  - Speech disorder [Unknown]
  - Memory impairment [Unknown]
  - Lacrimation increased [Unknown]
  - Chest pain [Unknown]
  - Heart rate increased [Unknown]
  - Palpitations [Unknown]

NARRATIVE: CASE EVENT DATE: 2015
